FAERS Safety Report 6250119-8 (Version None)
Quarter: 2009Q2

REPORT INFORMATION
  Report Type: 
  Country: None (occurrence: None)
  Receive Date: 20090626
  Receipt Date: 20090622
  Transmission Date: 20091009
  Serious: Yes (Hospitalization)
  Sender: FDA-Public Use
  Company Number: CERZ-1000705

PATIENT
  Sex: Male
  Weight: 130 kg

DRUGS (1)
  1. CEREZYME [Suspect]
     Indication: GAUCHER'S DISEASE
     Dosage: 8000 U, Q2W, INTRAVENOUS
     Route: 042
     Dates: start: 20070101

REACTIONS (11)
  - ARTHRALGIA [None]
  - BONE PAIN [None]
  - ELECTROLYTE IMBALANCE [None]
  - FALL [None]
  - HYPOAESTHESIA [None]
  - LOSS OF CONSCIOUSNESS [None]
  - MUSCULOSKELETAL PAIN [None]
  - PAIN IN EXTREMITY [None]
  - PARAESTHESIA [None]
  - TREMOR [None]
  - URINARY TRACT INFECTION [None]
